FAERS Safety Report 26023769 (Version 4)
Quarter: 2025Q4

REPORT INFORMATION
  Report Type: Spontaneous
  Country: EU (occurrence: EU)
  Receive Date: 20251111
  Receipt Date: 20251229
  Transmission Date: 20260118
  Serious: Yes (Life-Threatening, Hospitalization, Other)
  Sender: AUROBINDO
  Company Number: EU-MLMSERVICE-20251022-PI685357-00196-1

PATIENT
  Age: 11 Year
  Sex: Male
  Weight: 35 kg

DRUGS (6)
  1. LEVETIRACETAM [Suspect]
     Active Substance: LEVETIRACETAM
     Indication: Seizure
     Dosage: 30 MILLIGRAM/KILOGRAM, ONCE A DAY
  2. LEVETIRACETAM [Suspect]
     Active Substance: LEVETIRACETAM
     Indication: Muscular dystrophy
     Dosage: 10 MILLIGRAM/KILOGRAM, ONCE A DAY  (
  3. LEVETIRACETAM [Suspect]
     Active Substance: LEVETIRACETAM
     Indication: Cyanosis
     Dosage: 20 MILLIGRAM/KILOGRAM, ONCE A DAY
  4. LEVETIRACETAM [Suspect]
     Active Substance: LEVETIRACETAM
     Indication: Seizure
  5. SODIUM CHLORIDE [Concomitant]
     Active Substance: SODIUM CHLORIDE
     Indication: Seizure
     Dosage: 0.9 PERCENT
  6. VALPROATE [Concomitant]
     Active Substance: VALPROIC ACID
     Indication: Product used for unknown indication
     Dosage: 150 MILLIGRAM, TWO TIMES A DAY
     Route: 065

REACTIONS (4)
  - Metabolic acidosis [Recovered/Resolved]
  - Hypokalaemia [Recovered/Resolved]
  - Respiratory alkalosis [Recovered/Resolved]
  - Condition aggravated [Recovered/Resolved]
